FAERS Safety Report 20050605 (Version 3)
Quarter: 2022Q1

REPORT INFORMATION
  Report Type: Spontaneous
  Country: DE (occurrence: DE)
  Receive Date: 20211109
  Receipt Date: 20220222
  Transmission Date: 20220423
  Serious: Yes (Hospitalization, Other)
  Sender: FDA-Public Use
  Company Number: DE-BFARM-21009979

PATIENT
  Age: 80 Year
  Sex: Male
  Weight: 87 kg

DRUGS (6)
  1. CLOPIDOGREL [Suspect]
     Active Substance: CLOPIDOGREL BISULFATE
     Indication: Aphasia
     Dosage: INTAKE CONTINUED, 75 MILLIGRAM, DAILY
     Route: 048
     Dates: start: 20211006
  2. CLOPIDOGREL [Suspect]
     Active Substance: CLOPIDOGREL BISULFATE
     Indication: Cerebrovascular accident prophylaxis
     Dosage: 75 MILLIGRAM, DAILY, PAUSED 1 WEEK BEFORE SURGERY
     Route: 048
     Dates: start: 202106, end: 20210912
  3. CLOPIDOGREL [Suspect]
     Active Substance: CLOPIDOGREL BISULFATE
     Dosage: ATTEMPT TO TAKE, 75 MILLIGRAM, DAILY
     Route: 048
     Dates: start: 20210929
  4. ATORVASTATIN [Concomitant]
     Active Substance: ATORVASTATIN
     Indication: Coronary artery disease
     Dosage: 80 MILLIGRAM, DAILY, 0-0-1
     Route: 065
  5. prostagutt 160mg [Concomitant]
     Indication: Product used for unknown indication
     Dosage: 160 MILLIGRAM, BID, 1-0-1
     Route: 065
  6. flohsamen 1g [Concomitant]
     Indication: Product used for unknown indication
     Dosage: 1 GRAM, DAILY, 0-1-0
     Route: 065

REACTIONS (8)
  - Aphasia [Recovered/Resolved]
  - Thrombosis [Recovered/Resolved]
  - Wound closure [Recovered/Resolved]
  - Pain [Not Recovered/Not Resolved]
  - Blood urine present [Recovered/Resolved]
  - Haematoma [Not Recovered/Not Resolved]
  - Language disorder [Recovered/Resolved]
  - Haematuria [Recovered/Resolved]

NARRATIVE: CASE EVENT DATE: 20210929
